FAERS Safety Report 10385462 (Version 4)
Quarter: 2014Q4

REPORT INFORMATION
  Report Type: Spontaneous
  Country: US (occurrence: US)
  Receive Date: 20140814
  Receipt Date: 20141017
  Transmission Date: 20150528
  Serious: Yes (Hospitalization)
  Sender: FDA-Public Use
  Company Number: US-GLAXOSMITHKLINE-A1084063A

PATIENT
  Age: 69 Year
  Sex: Female

DRUGS (40)
  1. FENOFIBRATE. [Concomitant]
     Active Substance: FENOFIBRATE
  2. ATIVAN [Concomitant]
     Active Substance: LORAZEPAM
  3. NEBULIZER [Concomitant]
     Active Substance: UNSPECIFIED INGREDIENT
  4. ALBUTEROL NEBULIZER [Concomitant]
     Active Substance: ALBUTEROL
  5. IMDUR [Concomitant]
     Active Substance: ISOSORBIDE MONONITRATE
  6. NITROSTAT [Concomitant]
     Active Substance: NITROGLYCERIN
  7. CARDIAC MEDICATION [Concomitant]
     Active Substance: UNSPECIFIED INGREDIENT
  8. AMOXICILLIN CAPSULE [Suspect]
     Active Substance: AMOXICILLIN
     Indication: URINARY TRACT INFECTION
  9. HERBAL SUPPLEMENT [Concomitant]
     Active Substance: HERBALS
  10. PROAIR HFA [Concomitant]
     Active Substance: ALBUTEROL SULFATE
  11. PSYCHOTROPIC MEDICATIONS [Concomitant]
     Active Substance: UNSPECIFIED INGREDIENT
  12. ADVAIR DISKUS [Suspect]
     Active Substance: FLUTICASONE PROPIONATE\SALMETEROL XINAFOATE
     Indication: CHRONIC OBSTRUCTIVE PULMONARY DISEASE
     Dosage: 1 PUFF TWICE DAILY.
     Route: 055
     Dates: end: 2013
  13. VENTOLIN [Suspect]
     Active Substance: ALBUTEROL SULFATE
     Indication: CHRONIC OBSTRUCTIVE PULMONARY DISEASE
  14. ANORO ELLIPTA [Suspect]
     Active Substance: UMECLIDINIUM BROMIDE\VILANTEROL TRIFENATATE
     Indication: CHRONIC OBSTRUCTIVE PULMONARY DISEASE
     Route: 055
     Dates: start: 2014
  15. CRESTOR [Concomitant]
     Active Substance: ROSUVASTATIN CALCIUM
  16. RANEXA [Concomitant]
     Active Substance: RANOLAZINE
  17. VITAMIN D [Concomitant]
     Active Substance: CHOLECALCIFEROL
  18. RESTASIS [Concomitant]
     Active Substance: CYCLOSPORINE
  19. VENTOLIN [Suspect]
     Active Substance: ALBUTEROL SULFATE
     Indication: ASTHMA
     Dosage: 2 PUFFS AS REQUIRED.
     Route: 055
  20. VENTOLIN [Suspect]
     Active Substance: ALBUTEROL SULFATE
  21. UNSPECIFIED MEDICATION [Concomitant]
     Active Substance: UNSPECIFIED INGREDIENT
  22. INFLUENZA VACCINE UNSPECIFIED 2013-2014 SEASON SOLUTION FOR INJECTION [Suspect]
     Active Substance: INFLUENZA VIRUS VACCINE
     Indication: PROPHYLAXIS
     Route: 065
     Dates: start: 201312, end: 201312
  23. PNEUMOCOCCAL VACCINE POLYVALENT NOS [Suspect]
     Active Substance: PNEUMOCOCCAL VACCINE POLYVALENT
     Indication: PROPHYLAXIS
     Route: 065
     Dates: start: 201312
  24. POTASSIUM CHLORIDE. [Concomitant]
     Active Substance: POTASSIUM CHLORIDE
  25. MEDROL [Concomitant]
     Active Substance: METHYLPREDNISOLONE
  26. CALCIUM [Concomitant]
     Active Substance: CALCIUM
  27. PEPCID [Concomitant]
     Active Substance: FAMOTIDINE
  28. VITAMIN E [Concomitant]
     Active Substance: .ALPHA.-TOCOPHEROL
  29. ABILIFY [Concomitant]
     Active Substance: ARIPIPRAZOLE
  30. REFRESH GEL [Concomitant]
  31. ZOFRAN [Concomitant]
     Active Substance: ONDANSETRON HYDROCHLORIDE
  32. REFRESH EYE DROPS [Concomitant]
  33. AMOXICILLIN CAPSULE [Suspect]
     Active Substance: AMOXICILLIN
     Indication: DIVERTICULITIS
     Dosage: 500MG THREE TIMES DAILY.
  34. HUMALOG [Concomitant]
     Active Substance: INSULIN LISPRO
  35. FISH OIL [Concomitant]
     Active Substance: FISH OIL
  36. TRAZODONE [Concomitant]
     Active Substance: TRAZODONE HYDROCHLORIDE
  37. SEROQUEL [Concomitant]
     Active Substance: QUETIAPINE FUMARATE
  38. LORTAB [Concomitant]
     Active Substance: ACETAMINOPHEN\HYDROCODONE BITARTRATE
  39. ASPIRIN. [Concomitant]
     Active Substance: ASPIRIN
  40. EYE DROPS [Concomitant]
     Active Substance: TETRAHYDROZOLINE HYDROCHLORIDE

REACTIONS (20)
  - Eye operation [Unknown]
  - Dysphagia [Unknown]
  - Dyspepsia [Recovered/Resolved]
  - Injection site reaction [Recovered/Resolved]
  - Influenza [Not Recovered/Not Resolved]
  - Vision blurred [Unknown]
  - Hospice care [Unknown]
  - Dyspnoea [Unknown]
  - Oral candidiasis [Unknown]
  - Throat tightness [Unknown]
  - Chest pain [Recovered/Resolved]
  - Fatigue [Not Recovered/Not Resolved]
  - Malaise [Not Recovered/Not Resolved]
  - Feeling abnormal [Not Recovered/Not Resolved]
  - Muscle tightness [Unknown]
  - Swollen tongue [Unknown]
  - Rash [Recovered/Resolved]
  - Hypersensitivity [Unknown]
  - Fungal infection [Unknown]
  - General physical health deterioration [Unknown]

NARRATIVE: CASE EVENT DATE: 201302
